FAERS Safety Report 6523416-6 (Version None)
Quarter: 2009Q4

REPORT INFORMATION
  Report Type: 
  Country: None (occurrence: None)
  Receive Date: 20091214
  Receipt Date: 20090515
  Transmission Date: 20100525
  Serious: Yes (Life-Threatening, Hospitalization)
  Sender: FDA-Public Use
  Company Number: 633268

PATIENT
  Age: 54 Year
  Sex: Male

DRUGS (2)
  1. PEGASYS [Suspect]
     Indication: HEPATITIS C
     Dates: start: 20080601, end: 20090428
  2. RIBAVIRIN [Suspect]
     Indication: HEPATITIS C
     Dates: start: 20080601, end: 20090428

REACTIONS (1)
  - CEREBROVASCULAR ACCIDENT [None]
